FAERS Safety Report 7742654-8 (Version None)
Quarter: 2011Q3

REPORT INFORMATION
  Report Type: 
  Country: None (occurrence: None)
  Receive Date: 20110912
  Receipt Date: 20110901
  Transmission Date: 20111222
  Serious: Yes (Other)
  Sender: FDA-Public Use
  Company Number: US-BAYER-2011-037146

PATIENT
  Age: 42 Year
  Sex: Female
  Weight: 67.574 kg

DRUGS (2)
  1. MIRENA [Suspect]
     Indication: CONTRACEPTION
     Dosage: 20 ?G, CONT
     Route: 015
     Dates: start: 20050101, end: 20110125
  2. MIRENA [Suspect]
     Dosage: UNK
     Dates: start: 20110125

REACTIONS (1)
  - DEVICE DISLOCATION [None]
